FAERS Safety Report 21446898 (Version 1)
Quarter: 2022Q4

REPORT INFORMATION
  Report Type: Spontaneous
  Country: US (occurrence: None)
  Receive Date: 20221011
  Receipt Date: 20221011
  Transmission Date: 20230112
  Serious: Yes (Death)
  Sender: FDA-Public Use
  Company Number: None

PATIENT
  Sex: Female

DRUGS (1)
  1. CAPECITABINE [Suspect]
     Active Substance: CAPECITABINE
     Indication: Breast cancer
     Dosage: 1500 MG (3 TABLETS OF 500MG) TWICE A DAY FOR 14 DAYS THEN 7 DAYS OFF.??
     Route: 048
     Dates: start: 202110

REACTIONS (1)
  - Disease progression [None]
